FAERS Safety Report 8517030-0 (Version None)
Quarter: 2012Q3

REPORT INFORMATION
  Report Type: 
  Country: None (occurrence: None)
  Receive Date: 20120718
  Receipt Date: 20110906
  Transmission Date: 20120928
  Serious: No
  Sender: FDA-Public Use
  Company Number: US-FOUGERA-2012FO000169

PATIENT

DRUGS (1)
  1. CLOTRIMAZOLE/BETAMETHASONE DIPROPIONATE [Suspect]
     Indication: PRODUCT USED FOR UNKNOWN INDICATION
     Route: 061

REACTIONS (1)
  - SKIN IRRITATION [None]
